FAERS Safety Report 7341308-X (Version None)
Quarter: 2011Q1

REPORT INFORMATION
  Report Type: 
  Country: None (occurrence: None)
  Receive Date: 20110309
  Receipt Date: 20110303
  Transmission Date: 20110831
  Serious: Yes (Death, Life-Threatening, Hospitalization, Other)
  Sender: FDA-Public Use
  Company Number: JP-CELGENEUS-087-21880-11011446

PATIENT
  Sex: Male

DRUGS (38)
  1. FLOMAX [Concomitant]
     Dosage: 300 MILLIGRAM
     Route: 048
     Dates: start: 20110106, end: 20110216
  2. PL [Concomitant]
     Dosage: 3 GRAM
     Route: 048
     Dates: start: 20110106, end: 20110216
  3. REVLIMID [Suspect]
     Indication: MULTIPLE MYELOMA
     Dosage: 10 MILLIGRAM
     Route: 048
     Dates: start: 20101209, end: 20101229
  4. REVLIMID [Suspect]
     Dosage: 5 MILLIGRAM
     Route: 048
     Dates: start: 20110106, end: 20110126
  5. BAKTAR [Concomitant]
     Dosage: 1 TABLET
     Route: 048
     Dates: start: 20110106, end: 20110216
  6. FLUCONAZOLE [Concomitant]
     Dosage: 200 MILLIGRAM
     Route: 048
     Dates: start: 20110106, end: 20110216
  7. AMLODIPINE [Concomitant]
     Dosage: 5 MILLIGRAM
     Route: 048
     Dates: start: 20110106, end: 20110216
  8. KOBALNON [Concomitant]
     Indication: PROPHYLAXIS
     Dosage: 1.5 GRAM
     Route: 048
     Dates: end: 20110105
  9. VALTREX [Concomitant]
     Indication: PROPHYLAXIS
     Dosage: 1000 MILLIGRAM
     Route: 048
     Dates: end: 20110105
  10. DORMICUM [Concomitant]
     Indication: MULTIPLE MYELOMA
     Dosage: 180 MILLIGRAM
     Route: 030
     Dates: start: 20110219, end: 20110225
  11. CATABON [Concomitant]
     Indication: MULTIPLE MYELOMA
     Dosage: 2.5 MILLIGRAM
     Route: 041
     Dates: start: 20110219, end: 20110225
  12. LENADEX [Suspect]
     Indication: MULTIPLE MYELOMA
     Dosage: 20 MILLIGRAM
     Route: 048
     Dates: start: 20110106, end: 20110120
  13. FLUCONAZOLE [Concomitant]
     Indication: PROPHYLAXIS
     Dosage: 200 MILLIGRAM
     Route: 048
     Dates: end: 20110105
  14. ASPIRIN [Concomitant]
     Indication: PROPHYLAXIS
     Dosage: 100 MILLIGRAM
     Route: 048
     Dates: end: 20110105
  15. LOXONIN [Concomitant]
     Dosage: 120 MILLIGRAM
     Route: 048
     Dates: end: 20110105
  16. DUROTEP [Concomitant]
     Dosage: 4.2 MILLIGRAM
     Route: 062
     Dates: end: 20110105
  17. DUROTEP [Concomitant]
     Dosage: 4.2 MILLIGRAM
     Route: 062
     Dates: start: 20110106, end: 20110216
  18. FENTANYL [Concomitant]
     Indication: MULTIPLE MYELOMA
     Dosage: .6 MILLIGRAM
     Route: 041
     Dates: start: 20110225
  19. AMLODIPINE [Concomitant]
     Indication: HYPERTENSION
     Dosage: 5 MILLIGRAM
     Route: 048
     Dates: end: 20110105
  20. KOBALNON [Concomitant]
     Dosage: 1.5 GRAM
     Route: 048
     Dates: start: 20110106, end: 20110216
  21. VALTREX [Concomitant]
     Dosage: 1000 MILLIGRAM
     Route: 048
     Dates: start: 20110106, end: 20110216
  22. BENAMBAX [Concomitant]
     Indication: MULTIPLE MYELOMA
     Dosage: 200 MILLIGRAM
     Route: 041
     Dates: start: 20110224, end: 20110225
  23. BAKTAR [Concomitant]
     Indication: PROPHYLAXIS
     Dosage: 1 TABLET
     Route: 048
     Dates: end: 20110105
  24. GRAN [Concomitant]
     Dosage: 75 MILLIGRAM
     Route: 058
     Dates: start: 20110221, end: 20110225
  25. FOY [Concomitant]
     Indication: MULTIPLE MYELOMA
     Dosage: 1000 MILLIGRAM
     Route: 041
     Dates: start: 20110219, end: 20110223
  26. REVLIMID [Suspect]
     Dosage: 5 MILLIGRAM
     Route: 048
     Dates: start: 20110203, end: 20110216
  27. FLOMAX [Concomitant]
     Indication: PROPHYLAXIS
     Dosage: 300 MILLIGRAM
     Route: 048
     Dates: end: 20110105
  28. GRAN [Concomitant]
     Indication: MULTIPLE MYELOMA
     Dosage: 75 MILLIGRAM
     Route: 058
     Dates: start: 20110216, end: 20110218
  29. ASPIRIN [Concomitant]
     Dosage: 100 MILLIGRAM
     Route: 048
     Dates: start: 20110106, end: 20110216
  30. BROTIZOLAM [Concomitant]
     Dosage: .25 MILLIGRAM
     Route: 048
     Dates: end: 20110105
  31. ELASPOL [Concomitant]
     Indication: MULTIPLE MYELOMA
     Dosage: 300 MILLIGRAM
     Route: 041
     Dates: start: 20110219, end: 20110225
  32. LASIX [Concomitant]
     Indication: MULTIPLE MYELOMA
     Dosage: 20 MILLIGRAM
     Route: 041
     Dates: start: 20110222, end: 20110225
  33. LENADEX [Suspect]
     Dosage: 20 MILLIGRAM
     Route: 048
     Dates: start: 20110127, end: 20110210
  34. LOXONIN [Concomitant]
     Dosage: 120 MILLIGRAM
     Route: 048
     Dates: start: 20110106, end: 20110216
  35. BROTIZOLAM [Concomitant]
     Dosage: .25 MILLIGRAM
     Route: 048
     Dates: start: 20110106, end: 20110216
  36. FUNGUARD [Concomitant]
     Indication: MULTIPLE MYELOMA
     Dosage: 150 MILLIGRAM
     Route: 041
     Dates: start: 20110217, end: 20110223
  37. FOY [Concomitant]
     Dosage: 2000 MILLIGRAM
     Route: 041
     Dates: start: 20110224, end: 20110225
  38. PASIL [Concomitant]
     Indication: MULTIPLE MYELOMA
     Dosage: 1000 MILLIGRAM
     Route: 041
     Dates: start: 20110224, end: 20110225

REACTIONS (6)
  - HAEMOGLOBIN DECREASED [None]
  - PNEUMONIA VIRAL [None]
  - INFLUENZA [None]
  - INFLAMMATION [None]
  - THROMBOCYTOPENIA [None]
  - GASTROINTESTINAL INFECTION [None]
